FAERS Safety Report 8496297-1 (Version None)
Quarter: 2012Q3

REPORT INFORMATION
  Report Type: 
  Country: None (occurrence: None)
  Receive Date: 20120709
  Receipt Date: 20120628
  Transmission Date: 20120928
  Serious: Yes (Other)
  Sender: FDA-Public Use
  Company Number: GB-JNJFOC-20120700013

PATIENT
  Age: 17 Year
  Sex: Female
  Weight: 60 kg

DRUGS (3)
  1. SUDAFED 12 HOUR [Suspect]
     Route: 048
     Dates: start: 20120613, end: 20120617
  2. SUDAFED 12 HOUR [Suspect]
     Indication: NASOPHARYNGITIS
     Route: 048
     Dates: start: 20120613, end: 20120617
  3. SUDAFED 12 HOUR [Suspect]
     Route: 048

REACTIONS (1)
  - DYSTONIA [None]
